FAERS Safety Report 6294637-5 (Version None)
Quarter: 2009Q3

REPORT INFORMATION
  Report Type: 
  Country: None (occurrence: None)
  Receive Date: 20090731
  Receipt Date: 20090731
  Transmission Date: 20100115
  Serious: Yes (Life-Threatening, Hospitalization)
  Sender: FDA-Public Use
  Company Number: None

PATIENT
  Age: 19 Year
  Sex: Female
  Weight: 68.0396 kg

DRUGS (1)
  1. RISPERIDONE [Suspect]
     Indication: ANXIETY
     Dosage: 1/2 TABLET ONCE-1ST - 2DAYS PO
     Route: 048
     Dates: start: 20090612, end: 20090612

REACTIONS (9)
  - BLOOD PRESSURE DECREASED [None]
  - CARDIAC ARREST [None]
  - DIZZINESS [None]
  - EYE ROLLING [None]
  - HEART RATE DECREASED [None]
  - IMPAIRED WORK ABILITY [None]
  - LOSS OF CONSCIOUSNESS [None]
  - PALLOR [None]
  - TREMOR [None]
